FAERS Safety Report 11264792 (Version 1)
Quarter: 2015Q3

REPORT INFORMATION
  Report Type: Report from Study
  Country: US (occurrence: US)
  Receive Date: 20150713
  Receipt Date: 20150713
  Transmission Date: 20151125
  Serious: No
  Sender: FDA-Public Use
  Company Number: PHEH2014US018687

PATIENT
  Sex: Female

DRUGS (3)
  1. MYFORTIC [Suspect]
     Active Substance: MYCOPHENOLATE SODIUM
     Indication: RENAL TRANSPLANT
     Dosage: 360 MG, BID
     Route: 048
  2. DIOVAN [Suspect]
     Active Substance: VALSARTAN
     Indication: RENAL TRANSPLANT
     Dosage: 320 MG, UNK
     Route: 048
  3. NEORAL [Suspect]
     Active Substance: CYCLOSPORINE
     Indication: RENAL TRANSPLANT
     Dosage: 25 MG, 5 IN THE AM AND 4 IN THE PM
     Route: 048

REACTIONS (1)
  - Swelling [Unknown]
